FAERS Safety Report 9410395 (Version 5)
Quarter: 2014Q3

REPORT INFORMATION
  Report Type: Spontaneous
  Country: US (occurrence: US)
  Receive Date: 20130719
  Receipt Date: 20140916
  Transmission Date: 20150326
  Serious: Yes (Hospitalization)
  Sender: FDA-Public Use
  Company Number: US-VIIV HEALTHCARE LIMITED-A1034012A

PATIENT
  Age: 53 Year
  Sex: Male

DRUGS (5)
  1. EPIVIR [Suspect]
     Active Substance: LAMIVUDINE
     Indication: HIV INFECTION
     Dosage: 10MGML UNKNOWN
     Route: 065
     Dates: start: 20120417
  2. RETROVIR [Suspect]
     Active Substance: ZIDOVUDINE
     Indication: RENAL TRANSPLANT
     Dosage: 100MG THREE TIMES PER DAY
     Route: 048
     Dates: start: 20120420
  3. SUSTIVA [Concomitant]
     Active Substance: EFAVIRENZ
  4. UNSPECIFIED MEDICATIONS [Concomitant]
     Active Substance: UNSPECIFIED INGREDIENT
  5. EPIVIR [Suspect]
     Active Substance: LAMIVUDINE
     Indication: HIV INFECTION
     Dosage: 150MG TWICE PER DAY
     Route: 048
     Dates: start: 20120417

REACTIONS (4)
  - Diabetes mellitus [Unknown]
  - Therapy cessation [Unknown]
  - Visual acuity reduced [Unknown]
  - Renal transplant [Unknown]
